FAERS Safety Report 7897085-7 (Version None)
Quarter: 2011Q4

REPORT INFORMATION
  Report Type: 
  Country: None (occurrence: None)
  Receive Date: 20111103
  Receipt Date: 20111019
  Transmission Date: 20120403
  Serious: Yes (Death, Life-Threatening, Other)
  Sender: FDA-Public Use
  Company Number: 2011MA015302

PATIENT
  Age: 51 Year
  Sex: Female
  Weight: 113.3993 kg

DRUGS (20)
  1. IBUPROFEN [Suspect]
     Dosage: 1 BOTTLE; PO
     Route: 048
  2. BUPROPION HCL [Concomitant]
  3. VERBA MATE [Concomitant]
  4. ALCOHOL [Suspect]
     Dosage: 0.5 BOTTLE; PO
     Route: 048
  5. ZANTREX [Concomitant]
  6. GREEN TEA [Concomitant]
  7. GINSENG [Concomitant]
  8. DAMIANA [Concomitant]
  9. BEIGE POWDERY SUBSTANCE [Concomitant]
  10. METHADONE HCL [Suspect]
     Dosage: 16820 MG; 1X; PO
     Route: 048
  11. CAFFEINE CITRATE [Concomitant]
  12. OXYCODONE HCL [Suspect]
     Dosage: 80 MG
  13. PIPER NIGRUM [Concomitant]
  14. LORAZEPAM [Concomitant]
  15. NYQUIL GEL [Suspect]
     Indication: CHILLS
     Dosage: PO
     Route: 048
  16. NYQUIL GEL [Suspect]
     Indication: PYREXIA
     Dosage: PO
     Route: 048
  17. GABAPENTIN [Concomitant]
  18. VENLAFAXINE [Concomitant]
  19. GUARANA [Concomitant]
  20. KOLA NUT [Concomitant]

REACTIONS (14)
  - ARRHYTHMIA [None]
  - ELECTROCARDIOGRAM QT PROLONGED [None]
  - PYELONEPHRITIS CHRONIC [None]
  - DRUG LEVEL INCREASED [None]
  - CELL DEATH [None]
  - HEPATIC STEATOSIS [None]
  - UNRESPONSIVE TO STIMULI [None]
  - ARTERIOSCLEROSIS CORONARY ARTERY [None]
  - STREPTOCOCCUS TEST POSITIVE [None]
  - INFLUENZA LIKE ILLNESS [None]
  - CORNEAL OPACITY [None]
  - HEPATOMEGALY [None]
  - LOBAR PNEUMONIA [None]
  - BRONCHITIS CHRONIC [None]
